FAERS Safety Report 5923579-7 (Version None)
Quarter: 2008Q4

REPORT INFORMATION
  Report Type: 
  Country: None (occurrence: None)
  Receive Date: 20081020
  Receipt Date: 20081008
  Transmission Date: 20090506
  Serious: Yes (Hospitalization)
  Sender: FDA-Public Use
  Company Number: IT-AMGEN-UK298720

PATIENT
  Sex: Male
  Weight: 70 kg

DRUGS (9)
  1. PANITUMUMAB [Suspect]
     Indication: COLORECTAL CANCER
     Route: 042
     Dates: start: 20080611
  2. DEXAMETHASONE [Concomitant]
     Dates: start: 20080611
  3. CHLORPHENIRAMINE MALEATE [Concomitant]
     Dates: start: 20080611
  4. OXYCONTIN [Concomitant]
     Route: 048
     Dates: start: 20080409
  5. LYRICA [Concomitant]
     Route: 048
     Dates: start: 20080409
  6. DOXAZOSIN MESYLATE [Concomitant]
     Route: 048
  7. ESOMEPRAZOLE MAGNESIUM [Concomitant]
     Route: 048
  8. NADROPARIN CALCIUM [Concomitant]
     Route: 058
     Dates: start: 20080722
  9. GLIPIZIDE [Concomitant]

REACTIONS (3)
  - DEEP VEIN THROMBOSIS [None]
  - HYDRONEPHROSIS [None]
  - RENAL FAILURE ACUTE [None]
